FAERS Safety Report 14456712 (Version 2)
Quarter: 2018Q3

REPORT INFORMATION
  Report Type: Spontaneous
  Country: FR (occurrence: FR)
  Receive Date: 20180130
  Receipt Date: 20180827
  Transmission Date: 20181010
  Serious: Yes (Hospitalization)
  Sender: FDA-Public Use
  Company Number: FR-SUN PHARMACEUTICAL INDUSTRIES LTD-2018R1-161763

PATIENT
  Age: 17 Year
  Sex: Male

DRUGS (2)
  1. CANNABIS ET RESINE [Suspect]
     Active Substance: CANNABIS SATIVA SUBSP. INDICA TOP
     Indication: PRODUCT USED FOR UNKNOWN INDICATION
     Dosage: NON RENSEIGNEE
     Route: 055
  2. TRAMADOL. [Suspect]
     Active Substance: TRAMADOL
     Indication: PRODUCT USED FOR UNKNOWN INDICATION
     Dosage: UNK
     Route: 048
     Dates: start: 20170830, end: 20170830

REACTIONS (8)
  - Nausea [Recovered/Resolved]
  - Drug abuser [Not Recovered/Not Resolved]
  - Vomiting [Recovered/Resolved]
  - Drug abuse [Not Recovered/Not Resolved]
  - Depressed level of consciousness [Recovered/Resolved]
  - Intentional product misuse [Recovered/Resolved]
  - Tonic convulsion [Recovered/Resolved]
  - Toxicity to various agents [Recovered/Resolved]

NARRATIVE: CASE EVENT DATE: 20170830
